FAERS Safety Report 9284685 (Version 2)
Quarter: 2013Q2

REPORT INFORMATION
  Report Type: Spontaneous
  Country: IN (occurrence: IN)
  Receive Date: 20130513
  Receipt Date: 20130619
  Transmission Date: 20140414
  Serious: Yes (Death, Other)
  Sender: FDA-Public Use
  Company Number: IN-009507513-1305IND005037

PATIENT
  Age: 64 Year
  Sex: Female

DRUGS (1)
  1. JANUVIA [Suspect]
     Dosage: FREQUENCY REPORTED AS ^1/ DAY^
     Route: 048

REACTIONS (2)
  - Death [Fatal]
  - Leukaemia [Unknown]
